FAERS Safety Report 7295846-9 (Version None)
Quarter: 2011Q1

REPORT INFORMATION
  Report Type: 
  Country: None (occurrence: None)
  Receive Date: 20110216
  Receipt Date: 20110110
  Transmission Date: 20110831
  Serious: No
  Sender: FDA-Public Use
  Company Number: US-ABBOTT-11P-163-0696213-00

PATIENT
  Sex: Male
  Weight: 83.536 kg

DRUGS (2)
  1. SIMCOR [Suspect]
     Indication: HYPERLIPIDAEMIA
     Dates: start: 20101201
  2. SIMCOR [Suspect]
     Dosage: 500/20MG

REACTIONS (5)
  - INSOMNIA [None]
  - INCORRECT DOSE ADMINISTERED [None]
  - BURNING SENSATION [None]
  - PRURITUS [None]
  - FLUSHING [None]
